FAERS Safety Report 5714412-7 (Version None)
Quarter: 2008Q2

REPORT INFORMATION
  Report Type: 
  Country: None (occurrence: None)
  Receive Date: 20080423
  Receipt Date: 20010809
  Transmission Date: 20081010
  Serious: Yes (Death, Other)
  Sender: FDA-Public Use
  Company Number: US-ROCHE-265904

PATIENT
  Sex: Male
  Weight: 178.5 kg

DRUGS (16)
  1. CAPECITABINE [Suspect]
     Route: 048
     Dates: start: 20010207, end: 20010213
  2. CAPECITABINE [Suspect]
     Route: 048
     Dates: start: 20010221, end: 20010307
  3. IRINOTECAN HCL [Suspect]
     Route: 042
     Dates: start: 20010206, end: 20010220
  4. ACCUPRIL [Concomitant]
  5. TYLENOL W/ CODEINE NO. 3 [Concomitant]
     Route: 048
  6. TYLENOL W/ CODEINE NO. 3 [Concomitant]
     Route: 048
  7. TYLENOL W/ CODEINE NO. 3 [Concomitant]
     Route: 048
  8. LASIX [Concomitant]
  9. ALDACTONE [Concomitant]
  10. XANAX [Concomitant]
  11. SENOKOT [Concomitant]
     Route: 048
  12. MYLANTA [Concomitant]
  13. MYLANTA [Concomitant]
  14. MYLANTA [Concomitant]
  15. MOM [Concomitant]
  16. COLACE [Concomitant]

REACTIONS (4)
  - ABDOMINAL DISCOMFORT [None]
  - DEATH [None]
  - LIVER FUNCTION TEST ABNORMAL [None]
  - NEOPLASM PROGRESSION [None]
